FAERS Safety Report 4719532-1 (Version None)
Quarter: 2005Q3

REPORT INFORMATION
  Report Type: 
  Country: None (occurrence: None)
  Receive Date: 20050719
  Receipt Date: 20050705
  Transmission Date: 20060218
  Serious: Yes (Hospitalization)
  Sender: FDA-Public Use
  Company Number: 2005001268

PATIENT
  Age: 58 Year
  Sex: Male

DRUGS (8)
  1. TARCEVA [Suspect]
     Indication: NON-SMALL CELL LUNG CANCER
     Dosage: QD ORAL
     Route: 048
     Dates: start: 20050222
  2. OXYGEN [Concomitant]
  3. ALBUTEROL [Concomitant]
  4. DURAGESIC-100 [Concomitant]
  5. MORPHINE [Concomitant]
  6. HYDROCODONE [Concomitant]
  7. CARBINOXAMINE MALEATE [Concomitant]
  8. PSEUDOEPHEDRINE HCL [Concomitant]

REACTIONS (9)
  - ASTHENIA [None]
  - ATRIAL FIBRILLATION [None]
  - CONFUSIONAL STATE [None]
  - DYSPHAGIA [None]
  - HALLUCINATION [None]
  - HYPOTENSION [None]
  - HYPOTHYROIDISM [None]
  - RASH [None]
  - SOMNOLENCE [None]
